FAERS Safety Report 4567298-0 (Version None)
Quarter: 2005Q1

REPORT INFORMATION
  Report Type: 
  Country: None (occurrence: None)
  Receive Date: 20050127
  Receipt Date: 20041229
  Transmission Date: 20050727
  Serious: Yes (Other)
  Sender: FDA-Public Use
  Company Number: WAES 0501USA00475

PATIENT
  Sex: Male

DRUGS (1)
  1. CRIXIVAN [Suspect]
     Dosage: PO
     Route: 048

REACTIONS (1)
  - HEPATOCELLULAR DAMAGE [None]
